FAERS Safety Report 6085803-2 (Version None)
Quarter: 2009Q1

REPORT INFORMATION
  Report Type: 
  Country: None (occurrence: None)
  Receive Date: 20090220
  Receipt Date: 20090211
  Transmission Date: 20090719
  Serious: No
  Sender: FDA-Public Use
  Company Number: IT-EISAI MEDIAL RESEARCH-E7273-00047-SPO-IT

PATIENT
  Age: 66 Year
  Sex: Male

DRUGS (2)
  1. TARGRETIN [Suspect]
     Indication: MYCOSIS FUNGOIDES
     Dosage: UNKNOWN
  2. DELTACORTENE [Suspect]
     Indication: MYCOSIS FUNGOIDES
     Dosage: UNKNOWN

REACTIONS (1)
  - CONVULSION [None]
